FAERS Safety Report 4978944-1 (Version None)
Quarter: 2006Q2

REPORT INFORMATION
  Report Type: 
  Country: None (occurrence: None)
  Receive Date: 20060419
  Receipt Date: 20060419
  Transmission Date: 20061013
  Serious: Yes (Hospitalization)
  Sender: FDA-Public Use
  Company Number: None

PATIENT
  Age: 47 Year
  Sex: Female
  Weight: 50.3493 kg

DRUGS (3)
  1. XYREM [Suspect]
     Indication: HYPERSOMNIA
     Dosage: 7.5 ML BID
     Dates: start: 20060401, end: 20060410
  2. VIVACTIL [Concomitant]
  3. BONIVA [Concomitant]

REACTIONS (6)
  - CONFUSIONAL STATE [None]
  - LOGORRHOEA [None]
  - MANIA [None]
  - PARANOIA [None]
  - SUFFOCATION FEELING [None]
  - WEIGHT DECREASED [None]
